FAERS Safety Report 23585999 (Version 3)
Quarter: 2024Q1

REPORT INFORMATION
  Report Type: Report from Study
  Country: ES (occurrence: ES)
  Receive Date: 20240301
  Receipt Date: 20240321
  Transmission Date: 20240409
  Serious: No
  Sender: FDA-Public Use
  Company Number: ES-SA-SAC20240116001246

PATIENT
  Age: 58 Year
  Sex: Male

DRUGS (28)
  1. ISATUXIMAB [Suspect]
     Active Substance: ISATUXIMAB
     Indication: Plasma cell myeloma refractory
     Dosage: 900 MG, QW
     Dates: start: 20230614, end: 20230705
  2. ISATUXIMAB [Suspect]
     Active Substance: ISATUXIMAB
     Dosage: 900 MG, BIW
     Dates: start: 20230712, end: 20230726
  3. ISATUXIMAB [Suspect]
     Active Substance: ISATUXIMAB
     Dosage: 900 MG, BIW
     Dates: start: 20230809, end: 20230823
  4. ISATUXIMAB [Suspect]
     Active Substance: ISATUXIMAB
     Dosage: 900 MG, BIW
     Dates: start: 20230913, end: 20230927
  5. ISATUXIMAB [Suspect]
     Active Substance: ISATUXIMAB
     Dosage: 900 MG, BIW
     Dates: start: 20231010, end: 20231024
  6. ISATUXIMAB [Suspect]
     Active Substance: ISATUXIMAB
     Dosage: 900 MG, BIW
     Dates: start: 20231107, end: 20231121
  7. DEXAMETHASONE [Suspect]
     Active Substance: DEXAMETHASONE
     Indication: Plasma cell myeloma refractory
     Dosage: 20 MG, BIW
     Dates: start: 20230614, end: 20230629
  8. DEXAMETHASONE [Suspect]
     Active Substance: DEXAMETHASONE
     Dosage: 20 MG, BIW
     Dates: start: 20230712, end: 20230727
  9. DEXAMETHASONE [Suspect]
     Active Substance: DEXAMETHASONE
     Dosage: 20 MG, BIW
     Dates: start: 20230809, end: 20230824
  10. DEXAMETHASONE [Suspect]
     Active Substance: DEXAMETHASONE
     Dosage: 20 MG, BIW
     Dates: start: 20230913, end: 20230928
  11. DEXAMETHASONE [Suspect]
     Active Substance: DEXAMETHASONE
     Dosage: 20 MG, BIW
     Dates: start: 20231010, end: 20231025
  12. DEXAMETHASONE [Suspect]
     Active Substance: DEXAMETHASONE
     Dosage: 20 MG, BIW
     Dates: start: 20231107, end: 20231122
  13. CARFILZOMIB [Suspect]
     Active Substance: CARFILZOMIB
     Indication: Plasma cell myeloma refractory
     Dosage: 40 MG, BIW
     Dates: start: 20230614, end: 20230629
  14. CARFILZOMIB [Suspect]
     Active Substance: CARFILZOMIB
     Dosage: 40 MG, BIW
     Dates: start: 20230712, end: 20230727
  15. CARFILZOMIB [Suspect]
     Active Substance: CARFILZOMIB
     Dosage: 40 MG, BIW
     Dates: start: 20230809, end: 20230824
  16. CARFILZOMIB [Suspect]
     Active Substance: CARFILZOMIB
     Dosage: 40 MG, BIW
     Dates: start: 20230913, end: 20230928
  17. CARFILZOMIB [Suspect]
     Active Substance: CARFILZOMIB
     Dosage: 40 MG, BIW
     Dates: start: 20231010, end: 20231025
  18. CARFILZOMIB [Suspect]
     Active Substance: CARFILZOMIB
     Dosage: 40 MG, BIW
     Dates: start: 20231107, end: 20231122
  19. ALLOPURINOL [Concomitant]
     Active Substance: ALLOPURINOL
     Indication: Arthritis
     Dosage: UNK
     Dates: start: 20120925
  20. BRIVARACETAM [Concomitant]
     Active Substance: BRIVARACETAM
     Indication: Encephalitis
     Dosage: UNK
     Dates: start: 20240105, end: 20240216
  21. DIAZEPAM [Concomitant]
     Active Substance: DIAZEPAM
     Indication: Encephalitis
     Dosage: UNK
     Dates: start: 20240101, end: 20240101
  22. AMPICILLIN [Concomitant]
     Active Substance: AMPICILLIN
     Indication: Encephalitis
     Dosage: UNK
     Dates: start: 20240101, end: 20240102
  23. CEFTRIAXONE [Concomitant]
     Active Substance: CEFTRIAXONE\CEFTRIAXONE SODIUM
     Indication: Encephalitis
     Dosage: UNK
     Dates: start: 20240102, end: 20240123
  24. LINEZOLID [Concomitant]
     Active Substance: LINEZOLID
     Indication: Encephalitis
     Dosage: UNK
     Dates: start: 20240102, end: 20240105
  25. LEVETIRACETAM [Concomitant]
     Active Substance: LEVETIRACETAM
     Indication: Encephalitis
     Dosage: UNK
     Dates: start: 20240102, end: 20240104
  26. DEXAMETHASONE [Concomitant]
     Active Substance: DEXAMETHASONE
     Indication: Encephalitis
     Dosage: UNK
     Dates: start: 20240101, end: 20240109
  27. INSULIN NOS [Concomitant]
     Active Substance: INSULIN NOS
     Indication: Encephalitis
     Dosage: UNK
     Dates: start: 20240106, end: 20240122
  28. CHLORPROMAZINE [Concomitant]
     Active Substance: CHLORPROMAZINE
     Indication: Encephalitis
     Dosage: UNK
     Dates: start: 20240101

REACTIONS (3)
  - Pyrexia [Recovered/Resolved]
  - Disease progression [Not Recovered/Not Resolved]
  - Urinary tract infection bacterial [Recovered/Resolved]

NARRATIVE: CASE EVENT DATE: 20231129
